FAERS Safety Report 7282925-5 (Version None)
Quarter: 2011Q1

REPORT INFORMATION
  Report Type: 
  Country: None (occurrence: None)
  Receive Date: 20110209
  Receipt Date: 20101229
  Transmission Date: 20110831
  Serious: Yes (Hospitalization, Other)
  Sender: FDA-Public Use
  Company Number: US-BAYER-201022314NA

PATIENT
  Sex: Female
  Weight: 84 kg

DRUGS (17)
  1. FLAGYL [Concomitant]
     Dates: start: 20080101
  2. EFFEXOR [Concomitant]
     Indication: DEPRESSION
     Dates: start: 20060101, end: 20080615
  3. OXYCONTIN [Concomitant]
     Dosage: 20-40 MG PER DAY
  4. YAZ [Suspect]
     Indication: CONTRACEPTION
     Dosage: UNK UNK, QD
     Route: 048
     Dates: start: 20080301, end: 20080501
  5. YAZ [Suspect]
     Indication: PREMENSTRUAL SYNDROME
  6. ATIVAN [Concomitant]
     Dates: start: 20080701
  7. CIPROFLOXACIN [Concomitant]
     Dates: start: 20080601
  8. ABILIFY [Concomitant]
     Indication: DEPRESSION
     Dates: start: 20060101, end: 20080615
  9. TRAZODONE [Concomitant]
  10. YAZ [Suspect]
     Indication: ACNE
  11. LOVENOX [Concomitant]
     Indication: DEEP VEIN THROMBOSIS
     Dates: start: 20080501, end: 20080702
  12. LOVENOX [Concomitant]
  13. SEROQUEL [Concomitant]
  14. DEPO-PROVERA [Concomitant]
  15. VITAMIN K TAB [Concomitant]
     Route: 048
  16. ATIVAN [Concomitant]
     Indication: CONVULSION
     Dates: start: 20080201
  17. PROZAC [Concomitant]
     Dosage: 20 MG (DAILY DOSE), , ORAL
     Route: 048

REACTIONS (17)
  - ASTHENIA [None]
  - OEDEMA PERIPHERAL [None]
  - PULMONARY EMBOLISM [None]
  - DYSPNOEA [None]
  - PARAESTHESIA [None]
  - DEEP VEIN THROMBOSIS [None]
  - ABDOMINAL PAIN [None]
  - TENDERNESS [None]
  - CONTUSION [None]
  - PAIN IN EXTREMITY [None]
  - MUSCLE STRAIN [None]
  - COUGH [None]
  - HYPOAESTHESIA [None]
  - THROMBOSIS [None]
  - GROIN PAIN [None]
  - CHEST PAIN [None]
  - INFLAMMATION [None]
